FAERS Safety Report 23347501 (Version 1)
Quarter: 2023Q4

REPORT INFORMATION
  Report Type: Spontaneous
  Country: US (occurrence: US)
  Receive Date: 20231228
  Receipt Date: 20231228
  Transmission Date: 20240109
  Serious: No
  Sender: FDA-Public Use
  Company Number: US-GLAXOSMITHKLINE-US2023AMR179696

PATIENT
  Sex: Female

DRUGS (2)
  1. ZEJULA [Suspect]
     Active Substance: NIRAPARIB
     Indication: Product used for unknown indication
     Dosage: 300 MG, QD
     Route: 048
     Dates: start: 20231202
  2. PAPAYA [Suspect]
     Active Substance: PAPAYA
     Indication: Constipation
     Dosage: UNK

REACTIONS (4)
  - Constipation [Unknown]
  - Diarrhoea [Unknown]
  - Faeces hard [Unknown]
  - Insomnia [Unknown]

NARRATIVE: CASE EVENT DATE: 20231201
